FAERS Safety Report 5705451-0 (Version None)
Quarter: 2008Q2

REPORT INFORMATION
  Report Type: 
  Country: None (occurrence: None)
  Receive Date: 20080410
  Receipt Date: 20080402
  Transmission Date: 20081010
  Serious: Yes (Hospitalization, Other)
  Sender: FDA-Public Use
  Company Number: 100#08#2008-01820

PATIENT
  Age: 30 Year
  Sex: Male

DRUGS (2)
  1. CARBAMAZEPINE  (CARBAMAZEPINE) [Suspect]
     Indication: DRUG USE FOR UNKNOWN INDICATION
  2. AMOXICILLIN TRIHYDRATE [Suspect]

REACTIONS (11)
  - ANGIOEDEMA [None]
  - APHTHOUS STOMATITIS [None]
  - COUGH [None]
  - DRUG RASH WITH EOSINOPHILIA AND SYSTEMIC SYMPTOMS [None]
  - HEADACHE [None]
  - HEPATIC ENZYME INCREASED [None]
  - LYMPHADENOPATHY [None]
  - OEDEMA PERIPHERAL [None]
  - PROTEINURIA [None]
  - PYREXIA [None]
  - RASH MACULO-PAPULAR [None]
